FAERS Safety Report 8302012-4 (Version None)
Quarter: 2012Q2

REPORT INFORMATION
  Report Type: 
  Country: None (occurrence: None)
  Receive Date: 20120418
  Receipt Date: 20120418
  Transmission Date: 20120825
  Serious: Yes (Hospitalization, Disabling)
  Sender: FDA-Public Use
  Company Number: None

PATIENT
  Age: 60 Year
  Sex: Male
  Weight: 72.5755 kg

DRUGS (1)
  1. PHENYTOIN [Suspect]
     Indication: CONVULSION
     Dosage: 3 CAPSULES DAILY MOUTH
     Route: 048
     Dates: start: 20111218, end: 20120112

REACTIONS (3)
  - DYSPHAGIA [None]
  - STOMATITIS [None]
  - RASH [None]
